FAERS Safety Report 10194089 (Version 1)
Quarter: 2014Q2

REPORT INFORMATION
  Report Type: Spontaneous
  Country: US (occurrence: US)
  Receive Date: 20140524
  Receipt Date: 20140524
  Transmission Date: 20141212
  Serious: No
  Sender: FDA-Public Use
  Company Number: US-SANOFI-AVENTIS-2013SA065517

PATIENT
  Age: 70 Year
  Sex: Female

DRUGS (3)
  1. LANTUS SOLOSTAR [Suspect]
     Indication: DIABETES MELLITUS
     Dosage: DOSE:52 UNIT(S)
     Route: 048
  2. SOLOSTAR [Suspect]
  3. NOVOLOG [Concomitant]

REACTIONS (4)
  - Muscle spasms [Unknown]
  - Gait disturbance [Unknown]
  - Injection site haemorrhage [Unknown]
  - Injection site pain [Unknown]
